FAERS Safety Report 4431237-3 (Version None)
Quarter: 2004Q3

REPORT INFORMATION
  Report Type: 
  Country: None (occurrence: None)
  Receive Date: 20040824
  Receipt Date: 20040812
  Transmission Date: 20050211
  Serious: Yes (Death, Hospitalization)
  Sender: FDA-Public Use
  Company Number: MX-AMGEN-US087705

PATIENT
  Age: 47 Month
  Sex: Female
  Weight: 12.5 kg

DRUGS (3)
  1. ENBREL [Suspect]
     Indication: JUVENILE ARTHRITIS
     Route: 058
     Dates: start: 20031211
  2. PREDNISONE [Concomitant]
     Indication: JUVENILE ARTHRITIS
  3. METHOTREXATE [Concomitant]
     Indication: JUVENILE ARTHRITIS

REACTIONS (1)
  - CEREBRAL HAEMORRHAGE [None]
